FAERS Safety Report 20776860 (Version 2)
Quarter: 2022Q3

REPORT INFORMATION
  Report Type: Spontaneous
  Country: US (occurrence: US)
  Receive Date: 20220502
  Receipt Date: 20220721
  Transmission Date: 20221026
  Serious: Yes (Other)
  Sender: FDA-Public Use
  Company Number: US-BRISTOL-MYERS SQUIBB COMPANY-2022-026814

PATIENT
  Age: 74 Year
  Sex: Male

DRUGS (2)
  1. REVLIMID [Suspect]
     Active Substance: LENALIDOMIDE
     Indication: Plasma cell myeloma
     Dosage: TAKE 1 CAPSULE  EVERY OTHER DAY  ON 1-14 DAYS OF EACH 21 DAYS CYCLE
     Route: 048
  2. REVLIMID [Suspect]
     Active Substance: LENALIDOMIDE
     Dosage: TAKE 1 CAPSULE  EVERY OTHER DAY  ON 1-14 DAYS OF EACH 21 DAYS CYCLE
     Route: 048
     Dates: start: 20170522

REACTIONS (2)
  - Malignant neoplasm progression [Unknown]
  - Off label use [Unknown]
